FAERS Safety Report 10755606 (Version 1)
Quarter: 2015Q1

REPORT INFORMATION
  Report Type: Spontaneous
  Country: US (occurrence: US)
  Receive Date: 20150202
  Receipt Date: 20150202
  Transmission Date: 20150721
  Serious: No
  Sender: FDA-Public Use
  Company Number: US-ELI_LILLY_AND_COMPANY-US201501002396

PATIENT
  Sex: Male

DRUGS (2)
  1. CIALIS [Suspect]
     Active Substance: TADALAFIL
     Indication: ERECTILE DYSFUNCTION
     Dosage: 10 MG, UNKNOWN
     Route: 065
  2. CIALIS [Suspect]
     Active Substance: TADALAFIL
     Dosage: 5 MG, QD
     Route: 065
     Dates: start: 20150106

REACTIONS (2)
  - Drug ineffective [Unknown]
  - Benign prostatic hyperplasia [Unknown]
